FAERS Safety Report 5104593-0 (Version None)
Quarter: 2006Q3

REPORT INFORMATION
  Report Type: 
  Country: None (occurrence: None)
  Receive Date: 20060914
  Receipt Date: 20051215
  Transmission Date: 20061208
  Serious: No
  Sender: FDA-Public Use
  Company Number: US-BRISTOL-MYERS SQUIBB COMPANY-13217641

PATIENT
  Sex: Female
  Weight: 52 kg

DRUGS (2)
  1. BUSPAR [Suspect]
     Route: 048
     Dates: start: 20051006
  2. DEPO-PROVERA [Concomitant]

REACTIONS (1)
  - HYPOAESTHESIA [None]
